FAERS Safety Report 24217463 (Version 1)
Quarter: 2024Q3

REPORT INFORMATION
  Report Type: Spontaneous
  Country: US (occurrence: None)
  Receive Date: 20240816
  Receipt Date: 20240816
  Transmission Date: 20241016
  Serious: Yes (Hospitalization)
  Sender: Public
  Company Number: None

PATIENT
  Sex: Male
  Weight: 84.5 kg

DRUGS (4)
  1. FLUOROURACIL [Suspect]
     Active Substance: FLUOROURACIL
  2. LEUCOVORIN CALCIUM [Concomitant]
  3. NIVOLUMAB [Concomitant]
     Active Substance: NIVOLUMAB
  4. ELOXATIN [Concomitant]
     Active Substance: OXALIPLATIN

REACTIONS (6)
  - Vomiting [None]
  - Tremor [None]
  - Oxygen saturation decreased [None]
  - Pulmonary embolism [None]
  - Pneumonia [None]
  - Influenza [None]

NARRATIVE: CASE EVENT DATE: 20240802
